FAERS Safety Report 8426195-0 (Version None)
Quarter: 2012Q2

REPORT INFORMATION
  Report Type: 
  Country: None (occurrence: None)
  Receive Date: 20120611
  Receipt Date: 20110504
  Transmission Date: 20120825
  Serious: No
  Sender: FDA-Public Use
  Company Number: US-MYLANLABS-2011S1009409

PATIENT
  Age: 53 Year
  Sex: Male

DRUGS (2)
  1. CYCLOBENZAPRINE HCL [Suspect]
     Indication: HYPOTONIA
     Dosage: UP TO 10MG TID PRN
     Route: 048
     Dates: start: 20110101, end: 20110401
  2. CYCLOBENZAPRINE HCL [Suspect]
     Indication: BACK PAIN
     Dosage: UP TO 10MG TID PRN
     Route: 048
     Dates: start: 20110101, end: 20110401

REACTIONS (8)
  - DRUG EFFECT DELAYED [None]
  - DIZZINESS [None]
  - MUSCLE SPASMS [None]
  - LETHARGY [None]
  - SOMNOLENCE [None]
  - FEELING ABNORMAL [None]
  - IMPAIRED DRIVING ABILITY [None]
  - BACK PAIN [None]
